FAERS Safety Report 18927448 (Version 1)
Quarter: 2021Q1

REPORT INFORMATION
  Report Type: Spontaneous
  Country: US (occurrence: US)
  Receive Date: 20210223
  Receipt Date: 20210223
  Transmission Date: 20210420
  Serious: No
  Sender: FDA-Public Use
  Company Number: US-FERRINGPH-2020FE04935

PATIENT
  Sex: Female

DRUGS (1)
  1. STIMATE [Suspect]
     Active Substance: DESMOPRESSIN ACETATE
     Indication: VON WILLEBRAND^S DISEASE
     Dosage: 1 SPRAY EACH NOSTRIL AS NEEDED 24?48H
     Route: 045
     Dates: start: 20190605, end: 20200723

REACTIONS (4)
  - Nausea [Not Recovered/Not Resolved]
  - Recalled product administered [Recovered/Resolved]
  - Vomiting [Not Recovered/Not Resolved]
  - Haemorrhage [Not Recovered/Not Resolved]
